FAERS Safety Report 7242290-6 (Version None)
Quarter: 2011Q1

REPORT INFORMATION
  Report Type: 
  Country: None (occurrence: None)
  Receive Date: 20110125
  Receipt Date: 20110112
  Transmission Date: 20110831
  Serious: Yes (Death, Other)
  Sender: FDA-Public Use
  Company Number: DE-RANBAXY-2010US-38504

PATIENT

DRUGS (17)
  1. LOVENOX [Concomitant]
     Indication: PRODUCT USED FOR UNKNOWN INDICATION
     Dosage: UNK
     Route: 058
  2. INNOHEP [Concomitant]
     Indication: PRODUCT USED FOR UNKNOWN INDICATION
     Dosage: UNK, UNK
     Route: 058
  3. AUGMENTIN '125' [Concomitant]
     Dosage: 1 G, BID
     Route: 048
     Dates: start: 20100717, end: 20100721
  4. LYSODREN [Suspect]
     Indication: ADRENOCORTICAL CARCINOMA
     Dosage: 500 MG, 4 DOSAGE FORMS
     Route: 048
     Dates: start: 20100604, end: 20100617
  5. ACETAMINOPHEN [Suspect]
     Indication: PRODUCT USED FOR UNKNOWN INDICATION
     Dosage: 1 G, QID
     Route: 048
     Dates: start: 20100614, end: 20100618
  6. EUPANTOL [Suspect]
     Indication: PRODUCT USED FOR UNKNOWN INDICATION
     Dosage: 40 MG, UNK
     Route: 048
     Dates: start: 20100614
  7. LYSODREN [Suspect]
     Dosage: UNK, UNK
     Route: 048
     Dates: start: 20100618, end: 20100723
  8. LEXOMIL [Suspect]
     Indication: PRODUCT USED FOR UNKNOWN INDICATION
     Dosage: 0.5 DOSAGE FORM
     Route: 048
     Dates: start: 20100614
  9. PRIMPERAN TAB [Concomitant]
     Indication: PRODUCT USED FOR UNKNOWN INDICATION
     Dosage: UNK
     Route: 048
     Dates: start: 20100618
  10. ESTRO-PROGESTIN CONTRACEPTIVE [Concomitant]
     Indication: CONTRACEPTION
     Dosage: UNK, UNK
     Route: 065
  11. ZOPHREN [Suspect]
     Indication: PRODUCT USED FOR UNKNOWN INDICATION
     Dosage: 4 MG, 2 DOSAGE FORMS
     Route: 048
     Dates: start: 20100614
  12. SPASFON [Concomitant]
     Indication: PRODUCT USED FOR UNKNOWN INDICATION
     Dosage: 6 DOSAGE FORMS (2 DOSAGE FORMS, 3 IN 1 D)
     Route: 048
     Dates: start: 20100614, end: 20100621
  13. AUGMENTIN '125' [Concomitant]
     Indication: PRODUCT USED FOR UNKNOWN INDICATION
     Dosage: 1 G, TID
     Route: 048
     Dates: start: 20100714, end: 20100716
  14. STILNOX [Suspect]
     Indication: PRODUCT USED FOR UNKNOWN INDICATION
     Dosage: 10 MG, UNK
     Route: 048
     Dates: start: 20100614
  15. HYDROCORTISONE [Suspect]
     Indication: PRODUCT USED FOR UNKNOWN INDICATION
     Dosage: 100 MG THEN PROGRESSIVE DECREASE
     Route: 048
     Dates: start: 20100614
  16. ULTRALEVURE [Suspect]
     Indication: PRODUCT USED FOR UNKNOWN INDICATION
     Dosage: 3 DOSAGE FORMS
     Route: 048
     Dates: start: 20100614
  17. DEBRIDAT [Concomitant]
     Indication: PRODUCT USED FOR UNKNOWN INDICATION
     Dosage: 2 DOSAGE FORMS (1 DOSAGE FORM, 2 IN 1 D)
     Route: 048
     Dates: start: 20100618

REACTIONS (2)
  - CYTOLYTIC HEPATITIS [None]
  - CONDITION AGGRAVATED [None]
